FAERS Safety Report 12088933 (Version 1)
Quarter: 2016Q1

REPORT INFORMATION
  Report Type: Spontaneous
  Country: US (occurrence: US)
  Receive Date: 20160218
  Receipt Date: 20160218
  Transmission Date: 20160526
  Serious: No
  Sender: FDA-Public Use
  Company Number: US-GLAXOSMITHKLINE-US2016GSK022148

PATIENT
  Age: 59 Year
  Sex: Female

DRUGS (2)
  1. TANZEUM [Suspect]
     Active Substance: ALBIGLUTIDE
     Indication: TYPE 2 DIABETES MELLITUS
     Dosage: 50 MG, WE
     Dates: start: 2015
  2. TANZEUM [Suspect]
     Active Substance: ALBIGLUTIDE
     Dosage: 50 MG, WE
     Dates: start: 2015

REACTIONS (2)
  - Device use error [Unknown]
  - Drug dose omission [Unknown]

NARRATIVE: CASE EVENT DATE: 20160208
